FAERS Safety Report 24243557 (Version 1)
Quarter: 2024Q3

REPORT INFORMATION
  Report Type: Spontaneous
  Country: CN (occurrence: CN)
  Receive Date: 20240823
  Receipt Date: 20240823
  Transmission Date: 20241017
  Serious: Yes (Death, Life-Threatening, Hospitalization, Other)
  Sender: GILEAD
  Company Number: CN-GILEAD-2024-0684871

PATIENT
  Age: 59 Year
  Sex: Female
  Weight: 60 kg

DRUGS (1)
  1. TRODELVY [Suspect]
     Active Substance: SACITUZUMAB GOVITECAN-HZIY
     Indication: Ovarian cancer
     Dosage: 600 MG, ONCE
     Route: 041
     Dates: start: 20240621, end: 20240628

REACTIONS (1)
  - Myelosuppression [Fatal]

NARRATIVE: CASE EVENT DATE: 20240703
